FAERS Safety Report 7638642-2 (Version None)
Quarter: 2011Q3

REPORT INFORMATION
  Report Type: 
  Country: None (occurrence: None)
  Receive Date: 20110727
  Receipt Date: 20110725
  Transmission Date: 20111222
  Serious: Yes (Other)
  Sender: FDA-Public Use
  Company Number: US-PFIZER INC-2011168576

PATIENT
  Sex: Female

DRUGS (1)
  1. ALAVERT [Suspect]
     Dosage: UNK
     Dates: start: 20110701

REACTIONS (3)
  - DIZZINESS [None]
  - DEPRESSED MOOD [None]
  - BLOOD PRESSURE INCREASED [None]
